FAERS Safety Report 6472519-3 (Version None)
Quarter: 2009Q4

REPORT INFORMATION
  Report Type: 
  Country: None (occurrence: None)
  Receive Date: 20091203
  Receipt Date: 20081208
  Transmission Date: 20100525
  Serious: No
  Sender: FDA-Public Use
  Company Number: US-AMGEN-KDL322914

PATIENT
  Sex: Female
  Weight: 136.2 kg

DRUGS (2)
  1. ENBREL [Suspect]
     Indication: RHEUMATOID ARTHRITIS
     Route: 058
  2. PLAQUENIL [Concomitant]

REACTIONS (3)
  - ARTHRALGIA [None]
  - RHEUMATOID ARTHRITIS [None]
  - UPPER RESPIRATORY TRACT INFECTION [None]
